FAERS Safety Report 5043459-1 (Version None)
Quarter: 2006Q3

REPORT INFORMATION
  Report Type: 
  Country: None (occurrence: None)
  Receive Date: 20060705
  Receipt Date: 20060629
  Transmission Date: 20061208
  Serious: Yes (Other)
  Sender: FDA-Public Use
  Company Number: GB-BOEHRINGER INGELHEIM PHARMACEUTICALS, INC.-2006-UK-03008UK

PATIENT
  Age: 66 Year
  Sex: Female

DRUGS (2)
  1. PRAMIPEXOLE [Suspect]
     Dosage: 1MG 3 TIMES A DAY
     Route: 048
     Dates: start: 20050622
  2. PROPRANOLOL [Concomitant]
     Route: 048
     Dates: start: 20050310, end: 20050513

REACTIONS (2)
  - PHOTOPSIA [None]
  - VISUAL DISTURBANCE [None]
